FAERS Safety Report 9277714 (Version 2)
Quarter: 2013Q3

REPORT INFORMATION
  Report Type: Spontaneous
  Country: US (occurrence: None)
  Receive Date: 20121105
  Receipt Date: 20130815
  Transmission Date: 20140515
  Serious: Yes (Other)
  Sender: FDA-Public Use
  Company Number: ADR-2012-00771

PATIENT
  Sex: Male

DRUGS (2)
  1. BACLOFEN [Suspect]
     Indication: MUSCLE SPASTICITY
  2. BACLOFEN [Suspect]
     Indication: CEREBRAL PALSY

REACTIONS (12)
  - Therapeutic response decreased [None]
  - Muscle spasms [None]
  - Pruritus [None]
  - Hypertonia [None]
  - Incision site pain [None]
  - Incision site oedema [None]
  - Incision site erythema [None]
  - Pruritus [None]
  - Hypertonia [None]
  - Muscle tightness [None]
  - Swelling [None]
  - Infection [None]
